FAERS Safety Report 8840062 (Version 2)
Quarter: 2012Q4

REPORT INFORMATION
  Report Type: 
  Country: IL (occurrence: IL)
  Receive Date: 20121015
  Receipt Date: 20121108
  Transmission Date: 20130627
  Serious: Yes (Other)
  Sender: FDA-Public Use
  Company Number: IL-PFIZER INC-2012255146

PATIENT
  Age: 62 Year
  Sex: Female

DRUGS (2)
  1. CHAMPIX [Suspect]
     Indication: SMOKING CESSATION THERAPY
     Dosage: UNK
     Dates: start: 201209, end: 20121008
  2. CHAMPIX [Suspect]
     Dosage: UNK, once in a while
     Dates: start: 2012

REACTIONS (6)
  - Violence-related symptom [Recovered/Resolved]
  - Psychotic disorder [Recovered/Resolved]
  - Abnormal behaviour [Recovered/Resolved]
  - Nausea [Recovered/Resolved]
  - Dysgeusia [Recovered/Resolved]
  - Nightmare [Recovered/Resolved]
